FAERS Safety Report 24690680 (Version 1)
Quarter: 2024Q4

REPORT INFORMATION
  Report Type: Spontaneous
  Country: CZ (occurrence: CZ)
  Receive Date: 20241203
  Receipt Date: 20241203
  Transmission Date: 20250115
  Serious: Yes (Other)
  Sender: Karo Pharma
  Company Number: CZ-Karo Pharma-2166332

PATIENT
  Age: 60 Year
  Sex: Female

DRUGS (5)
  1. TERBINAFINE [Suspect]
     Active Substance: TERBINAFINE\TERBINAFINE HYDROCHLORIDE
     Indication: Bronchopulmonary aspergillosis
  2. ISAVUCONAZOLE [Suspect]
     Active Substance: ISAVUCONAZOLE
  3. AMPHOTERICIN B [Suspect]
     Active Substance: AMPHOTERICIN B
  4. MICAFUNGIN [Suspect]
     Active Substance: MICAFUNGIN SODIUM
  5. POSACONAZOLE [Suspect]
     Active Substance: POSACONAZOLE

REACTIONS (2)
  - Renal failure [Unknown]
  - Drug ineffective [Unknown]
